FAERS Safety Report 21620860 (Version 1)
Quarter: 2022Q4

REPORT INFORMATION
  Report Type: Spontaneous
  Country: US (occurrence: None)
  Receive Date: 20221118
  Receipt Date: 20221118
  Transmission Date: 20230112
  Serious: No
  Sender: FDA-Public Use
  Company Number: None

PATIENT
  Age: 45 Year
  Sex: Female

DRUGS (1)
  1. LUPRON [Suspect]
     Active Substance: LEUPROLIDE ACETATE
     Indication: Uterine leiomyoma
     Dosage: OTHER QUANTITY : 11.25MG;?OTHER FREQUENCY : Q 3MONTHS;?
     Route: 030
     Dates: start: 20221017

REACTIONS (3)
  - Device malfunction [None]
  - Device leakage [None]
  - Product dose omission issue [None]

NARRATIVE: CASE EVENT DATE: 20221116
